FAERS Safety Report 25218707 (Version 1)
Quarter: 2025Q2

REPORT INFORMATION
  Report Type: Report from Study
  Country: US (occurrence: US)
  Receive Date: 20250421
  Receipt Date: 20250421
  Transmission Date: 20250716
  Serious: Yes (Other)
  Sender: TAKEDA
  Company Number: US-TAKEDA-2025TUS029598

PATIENT
  Age: 65 Year
  Sex: Female

DRUGS (5)
  1. TEDUGLUTIDE [Suspect]
     Active Substance: TEDUGLUTIDE
     Indication: Short-bowel syndrome
     Dosage: 0.21 MILLILITER, QD
     Dates: start: 202503
  2. TEDUGLUTIDE [Suspect]
     Active Substance: TEDUGLUTIDE
  3. TEDUGLUTIDE [Suspect]
     Active Substance: TEDUGLUTIDE
  4. TEDUGLUTIDE [Suspect]
     Active Substance: TEDUGLUTIDE
  5. Gelsyn 3 [Concomitant]

REACTIONS (8)
  - Epilepsy [Unknown]
  - Cardiac failure congestive [Unknown]
  - Nausea [Recovering/Resolving]
  - Abdominal distension [Recovering/Resolving]
  - Blood pressure increased [Unknown]
  - Fluid retention [Unknown]
  - Vomiting [Unknown]
  - Abdominal pain [Unknown]

NARRATIVE: CASE EVENT DATE: 20250314
